FAERS Safety Report 18089126 (Version 2)
Quarter: 2020Q3

REPORT INFORMATION
  Report Type: Report from Study
  Country: US (occurrence: US)
  Receive Date: 20200729
  Receipt Date: 20200813
  Transmission Date: 20201103
  Serious: Yes (Death, Hospitalization)
  Sender: FDA-Public Use
  Company Number: US-EXELIXIS-XL18420031498

PATIENT
  Age: 62 Year
  Sex: Male
  Weight: 66.3 kg

DRUGS (20)
  1. PROCHLORPERAZINE. [Concomitant]
     Active Substance: PROCHLORPERAZINE
  2. VITAMIN B12 [Concomitant]
     Active Substance: CYANOCOBALAMIN
  3. LEVOTHYROXINE. [Concomitant]
     Active Substance: LEVOTHYROXINE
  4. ACETAMINOPHEN. [Concomitant]
     Active Substance: ACETAMINOPHEN
  5. ONDANSETRON [Concomitant]
     Active Substance: ONDANSETRON
     Indication: NAUSEA
  6. METHADONE [Concomitant]
     Active Substance: METHADONE HYDROCHLORIDE
  7. DRONABINOL. [Concomitant]
     Active Substance: DRONABINOL
  8. HYDROMORPHONE [Concomitant]
     Active Substance: HYDROMORPHONE
  9. SODIUM PHOSPHATE [Concomitant]
     Active Substance: SODIUM PHOSPHATE
  10. XL184 [Suspect]
     Active Substance: CABOZANTINIB
     Indication: HEAD AND NECK CANCER
     Dosage: 40 MG, QD
     Route: 048
     Dates: start: 20200618, end: 20200720
  11. MORPHINE [Concomitant]
     Active Substance: MORPHINE
  12. OXYCODONE [Concomitant]
     Active Substance: OXYCODONE
  13. CYCLOBENZAPRINE. [Concomitant]
     Active Substance: CYCLOBENZAPRINE
  14. PERIDEX [Concomitant]
     Active Substance: CHLORHEXIDINE GLUCONATE
  15. POTASSIUM PHOSPHATE [Concomitant]
     Active Substance: POTASSIUM PHOSPHATE
  16. ATEZOLIZUMAB. [Suspect]
     Active Substance: ATEZOLIZUMAB
     Indication: HEAD AND NECK CANCER
     Dosage: 1200 MG, Q3WEEKS
     Route: 042
     Dates: start: 20200618
  17. ONDANSETRON [Concomitant]
     Active Substance: ONDANSETRON
     Indication: VOMITING
  18. IBUPROFEN. [Concomitant]
     Active Substance: IBUPROFEN
  19. CELEXA [Concomitant]
     Active Substance: CITALOPRAM HYDROBROMIDE
  20. BOOST PLUS [Concomitant]
     Active Substance: DIETARY SUPPLEMENT

REACTIONS (1)
  - Dysphagia [Fatal]

NARRATIVE: CASE EVENT DATE: 20200717
